FAERS Safety Report 21388297 (Version 1)
Quarter: 2022Q3

REPORT INFORMATION
  Report Type: Spontaneous
  Country: CA (occurrence: CA)
  Receive Date: 20220928
  Receipt Date: 20220928
  Transmission Date: 20221027
  Serious: Yes (Other)
  Sender: FDA-Public Use
  Company Number: CA-PFIZER INC-202201190834

PATIENT
  Age: 46 Year
  Sex: Female
  Weight: 63 kg

DRUGS (7)
  1. SOLU-MEDROL [Suspect]
     Active Substance: METHYLPREDNISOLONE SODIUM SUCCINATE
     Dosage: UNK
  2. INFLECTRA [Concomitant]
     Active Substance: INFLIXIMAB-DYYB
     Indication: Crohn^s disease
     Dosage: INDUCTION WEEKS 0, 2, 6, THEN MAINTENANCE EVERY 8 WEEKS
     Route: 042
     Dates: start: 20220603
  3. INFLECTRA [Concomitant]
     Active Substance: INFLIXIMAB-DYYB
     Dosage: STAT DOSE. NOT GIVEN YET
     Route: 042
  4. INFLECTRA [Concomitant]
     Active Substance: INFLIXIMAB-DYYB
     Dosage: NOT STARTED YET
     Route: 042
  5. PREDNISONE [Concomitant]
     Active Substance: PREDNISONE
     Dosage: 1 DF
     Route: 065
     Dates: start: 20220603
  6. PREDNISONE [Concomitant]
     Active Substance: PREDNISONE
     Dosage: 25 MG
  7. PREDNISONE [Concomitant]
     Active Substance: PREDNISONE
     Dosage: 10 MG

REACTIONS (2)
  - Rectal haemorrhage [Unknown]
  - Bowel movement irregularity [Unknown]
